FAERS Safety Report 4372205-X (Version None)
Quarter: 2004Q2

REPORT INFORMATION
  Report Type: 
  Country: None (occurrence: None)
  Receive Date: 20040602
  Receipt Date: 20040519
  Transmission Date: 20050107
  Serious: Yes (Hospitalization)
  Sender: FDA-Public Use
  Company Number: 2004SE02910

PATIENT
  Age: 32 Year
  Sex: Male

DRUGS (4)
  1. QUETIAPINE [Suspect]
     Indication: PSYCHOTIC DISORDER
     Dosage: 300 MG DAILY PO
     Route: 048
  2. CHLORDIMETHYLDIAZEPAM [Concomitant]
  3. LORMETAZEPAM [Concomitant]
  4. NEULEPTIL [Concomitant]

REACTIONS (5)
  - CHOLESTASIS [None]
  - CYTOLYTIC HEPATITIS [None]
  - HYPERCHOLESTEROLAEMIA [None]
  - HYPERTRIGLYCERIDAEMIA [None]
  - LIPID METABOLISM DISORDER [None]
